FAERS Safety Report 11705126 (Version 1)
Quarter: 2015Q4

REPORT INFORMATION
  Report Type: Spontaneous
  Country: DK (occurrence: DK)
  Receive Date: 20151106
  Receipt Date: 20151106
  Transmission Date: 20160304
  Serious: Yes (Other)
  Sender: FDA-Public Use
  Company Number: DK-SA-2015SA173262

PATIENT
  Age: 40 Year
  Sex: Female

DRUGS (1)
  1. TAXOTERE [Suspect]
     Active Substance: DOCETAXEL
     Indication: PROPHYLACTIC CHEMOTHERAPY
     Dates: start: 201106, end: 201108

REACTIONS (3)
  - Pain in extremity [Unknown]
  - Polyneuropathy [Unknown]
  - Insomnia [Unknown]

NARRATIVE: CASE EVENT DATE: 2011
